FAERS Safety Report 4488291-2 (Version None)
Quarter: 2004Q4

REPORT INFORMATION
  Report Type: 
  Country: None (occurrence: None)
  Receive Date: 20041026
  Receipt Date: 20041012
  Transmission Date: 20050328
  Serious: Yes (Other)
  Sender: FDA-Public Use
  Company Number: EM2004-0519

PATIENT
  Age: 66 Year
  Sex: Male

DRUGS (2)
  1. PROLEUKIN [Suspect]
     Indication: MALIGNANT MELANOMA
     Dosage: 0.72 MIU/KG, Q8H, INTRAVENOUS
     Route: 042
  2. VACCINE [Concomitant]

REACTIONS (4)
  - COLONIC HAEMORRHAGE [None]
  - DIVERTICULAR PERFORATION [None]
  - MALIGNANT MELANOMA [None]
  - POST PROCEDURAL HAEMORRHAGE [None]
